FAERS Safety Report 9319550 (Version 1)
Quarter: 2013Q2

REPORT INFORMATION
  Report Type: Spontaneous
  Country: US (occurrence: US)
  Receive Date: 20130530
  Receipt Date: 20130530
  Transmission Date: 20140414
  Serious: No
  Sender: FDA-Public Use
  Company Number: US-GLAXOSMITHKLINE-A1002154A

PATIENT
  Age: 48 Year
  Sex: Female

DRUGS (3)
  1. FLOLAN [Suspect]
     Dosage: 15NGKM CONTINUOUS
     Route: 065
     Dates: start: 20100426
  2. LETAIRIS [Suspect]
     Indication: ESSENTIAL HYPERTENSION
     Dosage: 10MG PER DAY
     Route: 048
     Dates: start: 20110330
  3. TREPROSTINIL SODIUM [Suspect]
     Indication: PRODUCT USED FOR UNKNOWN INDICATION

REACTIONS (10)
  - Headache [Unknown]
  - Arthralgia [Unknown]
  - Cough [Unknown]
  - Pain in jaw [Unknown]
  - Diarrhoea [Unknown]
  - Dizziness [Unknown]
  - Oedema [Unknown]
  - Dyspnoea [Unknown]
  - Headache [Unknown]
  - Flushing [Unknown]
